FAERS Safety Report 19420471 (Version 1)
Quarter: 2021Q2

REPORT INFORMATION
  Report Type: Report from Study
  Country: US (occurrence: US)
  Receive Date: 20210616
  Receipt Date: 20210616
  Transmission Date: 20210717
  Serious: Yes (Death)
  Sender: FDA-Public Use
  Company Number: US-ASTRAZENECA-2021A526031

PATIENT
  Age: 28325 Day
  Sex: Male
  Weight: 134.7 kg

DRUGS (19)
  1. ACYCLOVIR. [Concomitant]
     Active Substance: ACYCLOVIR
  2. METOLAZONE. [Concomitant]
     Active Substance: METOLAZONE
  3. METOPROLOL. [Concomitant]
     Active Substance: METOPROLOL
  4. BUMETANIDE. [Concomitant]
     Active Substance: BUMETANIDE
  5. GLUCAGON. [Concomitant]
     Active Substance: GLUCAGON
  6. ALBUTEROL. [Concomitant]
     Active Substance: ALBUTEROL
  7. ALLOPURINOL. [Concomitant]
     Active Substance: ALLOPURINOL
  8. BUMETANIDE. [Concomitant]
     Active Substance: BUMETANIDE
  9. LANTUS [Concomitant]
     Active Substance: INSULIN GLARGINE
  10. ZOFRAN [Concomitant]
     Active Substance: ONDANSETRON HYDROCHLORIDE
  11. CALQUENCE [Suspect]
     Active Substance: ACALABRUTINIB
     Indication: CHRONIC LYMPHOCYTIC LEUKAEMIA
     Route: 048
     Dates: start: 20210401
  12. ELIQUIS [Concomitant]
     Active Substance: APIXABAN
  13. KEFLEX [Concomitant]
     Active Substance: CEPHALEXIN
  14. PROCHLORPERAZINE. [Concomitant]
     Active Substance: PROCHLORPERAZINE
  15. SIMVASTATIN. [Concomitant]
     Active Substance: SIMVASTATIN
  16. TIAZAC [Concomitant]
     Active Substance: DILTIAZEM HYDROCHLORIDE
  17. TAMSULOSIN [Concomitant]
     Active Substance: TAMSULOSIN
  18. NOVOLOG [Concomitant]
     Active Substance: INSULIN ASPART
  19. BASAGLAR KWIKPEN [Concomitant]
     Active Substance: INSULIN GLARGINE

REACTIONS (1)
  - Death [Fatal]

NARRATIVE: CASE EVENT DATE: 20210512
